FAERS Safety Report 15706112 (Version 1)
Quarter: 2018Q4

REPORT INFORMATION
  Report Type: Spontaneous
  Country: PL (occurrence: PL)
  Receive Date: 20181210
  Receipt Date: 20181210
  Transmission Date: 20190205
  Serious: Yes (Other)
  Sender: FDA-Public Use
  Company Number: PL-SHIRE-PL201846990

PATIENT

DRUGS (1)
  1. KIOVIG [Suspect]
     Active Substance: HUMAN IMMUNOGLOBULIN G
     Indication: IMMUNODEFICIENCY COMMON VARIABLE
     Dosage: 0.5-0.6G/KG QMT
     Route: 042
     Dates: start: 201509

REACTIONS (3)
  - Therapeutic response shortened [Unknown]
  - Therapy partial responder [Unknown]
  - Exposure during pregnancy [Unknown]
